FAERS Safety Report 6245069-7 (Version None)
Quarter: 2009Q2

REPORT INFORMATION
  Report Type: 
  Country: None (occurrence: None)
  Receive Date: 20090625
  Receipt Date: 20090615
  Transmission Date: 20091009
  Serious: Yes (Other)
  Sender: FDA-Public Use
  Company Number: US-ELI_LILLY_AND_COMPANY-US200609001166

PATIENT
  Sex: Male
  Weight: 103.86 kg

DRUGS (14)
  1. ZYPREXA [Suspect]
     Indication: THINKING ABNORMAL
     Dosage: 10 MG, 2/D
     Dates: start: 20000101, end: 20030423
  2. ZYPREXA [Suspect]
     Dosage: 20 MG, EACH EVENING
     Dates: start: 20030425
  3. ZYPREXA [Suspect]
     Dosage: 15 MG, UNK
     Dates: start: 20030514, end: 20030818
  4. ZYPREXA [Suspect]
     Dosage: 10 MG, UNK
     Dates: start: 20030819, end: 20060101
  5. ZYPREXA [Suspect]
     Dosage: 2.5 MG, UNK
  6. ZYPREXA [Suspect]
     Dosage: 30 MG, DAILY (1/D)
  7. HALOPERIDOL [Concomitant]
     Dosage: 10 MG, UNK
     Dates: start: 19980201, end: 20030513
  8. HALOPERIDOL [Concomitant]
     Dosage: 15 MG, UNK
     Dates: start: 20030514, end: 20060101
  9. HALOPERIDOL [Concomitant]
     Dosage: 0.5 MG, UNK
  10. HALOPERIDOL [Concomitant]
     Dosage: 40 MG, UNK
  11. ATIVAN [Concomitant]
     Dosage: 0.5 MG, UNK
  12. ATIVAN [Concomitant]
     Dosage: 8 MG, UNK
  13. COGENTIN [Concomitant]
     Dosage: 0.5 MG, UNK
  14. COGENTIN [Concomitant]
     Dosage: 6 MG, UNK

REACTIONS (11)
  - BLOOD GLUCOSE INCREASED [None]
  - EPISTAXIS [None]
  - HAEMATOCRIT INCREASED [None]
  - HAEMOGLOBIN INCREASED [None]
  - HEPATITIS C [None]
  - LYMPHOCYTE COUNT INCREASED [None]
  - MONOCYTE COUNT INCREASED [None]
  - OVERDOSE [None]
  - PANCREATITIS [None]
  - RED BLOOD CELL COUNT INCREASED [None]
  - WHITE BLOOD CELL COUNT INCREASED [None]
